FAERS Safety Report 9181481 (Version 4)
Quarter: 2013Q4

REPORT INFORMATION
  Report Type: Spontaneous
  Country: GB (occurrence: GB)
  Receive Date: 20130322
  Receipt Date: 20131018
  Transmission Date: 20140711
  Serious: Yes (Hospitalization, Other)
  Sender: FDA-Public Use
  Company Number: GB-JNJFOC-20130308582

PATIENT
  Age: 60 Year
  Sex: Male
  Weight: 80.2 kg

DRUGS (9)
  1. STELARA [Suspect]
     Indication: PSORIASIS
     Route: 058
     Dates: start: 20130315
  2. STELARA [Suspect]
     Indication: PSORIASIS
     Route: 058
     Dates: start: 20121218
  3. STELARA [Suspect]
     Indication: PSORIASIS
     Route: 058
     Dates: start: 20121118
  4. IBUPROFEN [Suspect]
     Indication: PAIN
     Route: 065
     Dates: start: 20130207, end: 20130208
  5. LOSARTAN [Concomitant]
     Indication: HYPERTENSION
     Dosage: 100 (UNIT UNSPECIFIED)
     Route: 048
     Dates: start: 20100720
  6. CO-TENIDONE [Concomitant]
     Dosage: 100/ 25 (UNITS UNSPECIFIED)
     Route: 048
     Dates: start: 20100720
  7. ANADIN [Concomitant]
     Route: 065
  8. CLONIDINE [Concomitant]
     Route: 065
  9. LORATADINE [Concomitant]
     Route: 065

REACTIONS (5)
  - Hypotension [Recovered/Resolved]
  - Lip swelling [Recovered/Resolved]
  - Dizziness [Recovered/Resolved]
  - Hypersensitivity [Recovered/Resolved]
  - Infection [Unknown]
